FAERS Safety Report 11131890 (Version 1)
Quarter: 2015Q2

REPORT INFORMATION
  Report Type: Spontaneous
  Country: NL (occurrence: None)
  Receive Date: 20150520
  Receipt Date: 20150520
  Transmission Date: 20150821
  Serious: Yes (Other)
  Sender: FDA-Public Use
  Company Number: ADR-2015-00971

PATIENT
  Age: 20 Year
  Sex: Male

DRUGS (2)
  1. BACLOFEN. [Suspect]
     Active Substance: BACLOFEN
     Indication: DRUG DEPENDENCE
  2. DIAZEPAM. [Suspect]
     Active Substance: DIAZEPAM

REACTIONS (6)
  - Depression [None]
  - Fatigue [None]
  - Drug abuse [None]
  - Myalgia [None]
  - Urinary tract infection [None]
  - Off label use [None]

NARRATIVE: CASE EVENT DATE: 20150223
